FAERS Safety Report 8622066-5 (Version None)
Quarter: 2012Q3

REPORT INFORMATION
  Report Type: 
  Country: None (occurrence: None)
  Receive Date: 20120823
  Receipt Date: 20120823
  Transmission Date: 20120928
  Serious: Yes (Other)
  Sender: FDA-Public Use
  Company Number: None

PATIENT
  Sex: Male
  Weight: 13.6079 kg

DRUGS (2)
  1. LEVOCARNITINE [Suspect]
     Indication: URTICARIA
     Dosage: 2.5ML QD PO
     Route: 048
  2. LEVOCARNITINE [Suspect]
     Indication: HYPERSENSITIVITY
     Dosage: 2.5ML QD PO
     Route: 048

REACTIONS (1)
  - SINUS TACHYCARDIA [None]
